FAERS Safety Report 13813291 (Version 1)
Quarter: 2017Q3

REPORT INFORMATION
  Report Type: Spontaneous
  Country: PL (occurrence: PL)
  Receive Date: 20170729
  Receipt Date: 20170729
  Transmission Date: 20171127
  Serious: Yes (Hospitalization, Other)
  Sender: FDA-Public Use
  Company Number: PL-009507513-1707POL011891

PATIENT
  Age: 36 Year
  Sex: Male

DRUGS (5)
  1. DECA-DURABOLIN [Suspect]
     Active Substance: NANDROLONE DECANOATE
     Dosage: DOSES SIGNIFICANTLY EXCEEDING MAXIMUM DOSE ALLOWED
     Route: 030
  2. DIETARY SUPPLEMENT (UNSPECIFIED) [Suspect]
     Active Substance: DIETARY SUPPLEMENT
     Dosage: UNK, QD
  3. AMINO ACIDS (UNSPECIFIED) [Suspect]
     Active Substance: AMINO ACIDS
  4. TESTOSTERONE UNDECANOATE [Suspect]
     Active Substance: TESTOSTERONE UNDECANOATE
     Dosage: UNK
     Route: 030
  5. DIETARY SUPPLEMENT (UNSPECIFIED) [Suspect]
     Active Substance: DIETARY SUPPLEMENT
     Dosage: SLIGHTLY REDUCED DOSAGE IN THE MAINTENANCE PHASE (15 GRAMS PER DAY)

REACTIONS (7)
  - Hypothalamic pituitary adrenal axis suppression [Unknown]
  - Renal impairment [Not Recovered/Not Resolved]
  - Blood prolactin increased [Recovering/Resolving]
  - Intentional product misuse [Unknown]
  - Blood gonadotrophin abnormal [Unknown]
  - Sex hormone binding globulin decreased [Unknown]
  - Intentional overdose [Unknown]
